FAERS Safety Report 25908291 (Version 1)
Quarter: 2025Q4

REPORT INFORMATION
  Report Type: Report from Study
  Country: US (occurrence: US)
  Receive Date: 20251010
  Receipt Date: 20251010
  Transmission Date: 20260117
  Serious: Yes (Hospitalization, Other)
  Sender: EISAI
  Company Number: US-Eisai-EC-2025-194137

PATIENT
  Age: 69 Year
  Sex: Male

DRUGS (3)
  1. LENVIMA [Suspect]
     Active Substance: LENVATINIB
     Indication: Thyroid neoplasm
     Route: 048
     Dates: start: 202403, end: 202410
  2. LENVIMA [Suspect]
     Active Substance: LENVATINIB
     Route: 048
     Dates: start: 202412, end: 20250501
  3. LENVIMA [Suspect]
     Active Substance: LENVATINIB
     Route: 048
     Dates: start: 202508

REACTIONS (7)
  - Asthenia [Recovered/Resolved]
  - Weight decreased [Recovering/Resolving]
  - Decreased appetite [Recovered/Resolved]
  - Haematochezia [Unknown]
  - Oesophageal perforation [Recovered/Resolved]
  - Loss of consciousness [Recovered/Resolved]
  - Liver abscess [Unknown]

NARRATIVE: CASE EVENT DATE: 20250101
